FAERS Safety Report 5084902-1 (Version None)
Quarter: 2006Q3

REPORT INFORMATION
  Report Type: 
  Country: None (occurrence: None)
  Receive Date: 20060815
  Receipt Date: 20060731
  Transmission Date: 20061208
  Serious: Yes (Hospitalization, Other)
  Sender: FDA-Public Use
  Company Number: 2006AL002068

PATIENT
  Age: 95 Year
  Sex: Female

DRUGS (9)
  1. SPIRONOLACTONE TABLETS USP, 50 MG (PUREPAC) (SPIRONOLACTONE TABLETS US [Suspect]
     Indication: POLYURIA
     Dosage: 25 MG; QD; PO
     Route: 048
     Dates: start: 19970407, end: 20060407
  2. TEMAZEPAM [Concomitant]
  3. ACETAMINOPHEN [Concomitant]
  4. LACTULOSE [Concomitant]
  5. METOCLOPRAMIDE [Concomitant]
  6. PILOCARPINE [Concomitant]
  7. XALACOM [Concomitant]
  8. AZOPT [Concomitant]
  9. PAROXETINE HCL [Concomitant]

REACTIONS (2)
  - CONTUSION [None]
  - PLATELET COUNT DECREASED [None]
